FAERS Safety Report 25946002 (Version 1)
Quarter: 2025Q4

REPORT INFORMATION
  Report Type: Spontaneous
  Country: EU (occurrence: EU)
  Receive Date: 20251021
  Receipt Date: 20251021
  Transmission Date: 20260118
  Serious: Yes (Life-Threatening, Hospitalization, Other)
  Sender: BAUSCH AND LOMB
  Company Number: RE-AMGEN-FRASP2025123911

PATIENT
  Age: 55 Year
  Sex: Female

DRUGS (24)
  1. DEXAMETHASONE SODIUM PHOSPHATE [Suspect]
     Active Substance: DEXAMETHASONE SODIUM PHOSPHATE
     Indication: Plasma cell myeloma
     Dosage: UNK
     Dates: start: 20190808
  2. CARFILZOMIB [Suspect]
     Active Substance: CARFILZOMIB
     Indication: Plasma cell myeloma
     Dosage: UNK UNK, CYCLE 1 DAY 1 KPD/ INITIAL PEAK AT 44.8 G/L.
     Dates: start: 20190808
  3. CARFILZOMIB [Suspect]
     Active Substance: CARFILZOMIB
     Dosage: UNK UNK, CYCLE 3 DAY 1 KPD/ PEAK AT 24 G/L.
     Dates: start: 20191028
  4. CARFILZOMIB [Suspect]
     Active Substance: CARFILZOMIB
     Dosage: 56 MILLIGRAM/SQ. METER, QMO
     Dates: start: 201912
  5. CARFILZOMIB [Suspect]
     Active Substance: CARFILZOMIB
     Dosage: UNK UNK THEY RESUMED KYPROLIS WITH POMALIDOMIDE, AND ON THE NIGHT OF THE RESTART SESSION)
  6. CARFILZOMIB [Suspect]
     Active Substance: CARFILZOMIB
     Dosage: UNK 1 VIAL OF KYPROLIS 60 MG, 1 VIAL OF KYPROLIS 30 MG AND 1 VIAL OF KYPROLIS 10 MG
     Dates: start: 20250527
  7. CARFILZOMIB [Suspect]
     Active Substance: CARFILZOMIB
     Dosage: UNK 1 VIAL OF KYPROLIS 60 MG, 1 VIAL OF KYPROLIS 30 MG AND 1 VIAL OF KYPROLIS 10 MG
     Dates: start: 20250527
  8. CARFILZOMIB [Suspect]
     Active Substance: CARFILZOMIB
     Dosage: UNK 1 VIAL OF KYPROLIS 60 MG, 1 VIAL OF KYPROLIS 30 MG AND 1 VIAL OF KYPROLIS 10 MG
     Dates: start: 20250527
  9. POMALIDOMIDE [Suspect]
     Active Substance: POMALIDOMIDE
     Indication: Plasma cell myeloma
     Dosage: 3 MILLIGRAM 3 WEEKS OUT OF 4
     Dates: start: 20190808
  10. INFLUENZA VIRUS VACCINE [Concomitant]
     Active Substance: INFLUENZA VIRUS VACCINE
     Indication: Product used for unknown indication
     Dosage: UNK
     Dates: start: 2025
  11. RAMIPRIL [Concomitant]
     Active Substance: RAMIPRIL
     Indication: Product used for unknown indication
     Dosage: 5 MILLIGRAM, QD
  12. ASPIRIN LYSINE [Concomitant]
     Active Substance: ASPIRIN LYSINE
     Indication: Product used for unknown indication
     Dosage: 75 MILLIGRAM, QD (1 SACHET PER DAY)
  13. SULFAMETHOXAZOLE\TRIMETHOPRIM [Concomitant]
     Active Substance: SULFAMETHOXAZOLE\TRIMETHOPRIM
     Indication: Product used for unknown indication
     Dosage: UNK 1 TABLET ON MONDAYS, WEDNESDAYS AND FRIDAYS
  14. LEUCOVORIN CALCIUM [Concomitant]
     Active Substance: LEUCOVORIN CALCIUM
     Indication: Product used for unknown indication
     Dosage: 25 MILLIGRAM ON SATURDAYS
  15. PENICILLIN V [Concomitant]
     Active Substance: PENICILLIN V
     Indication: Product used for unknown indication
     Dosage: 1 MILLI-INTERNATIONAL UNIT, BID (1 TABLET MORNING AND EVENING)
  16. VALACYCLOVIR HYDROCHLORIDE [Concomitant]
     Active Substance: VALACYCLOVIR HYDROCHLORIDE
     Indication: Product used for unknown indication
     Dosage: 500 MILLIGRAM, BID (1 TABLET MORNING AND EVENING)
  17. COLECALCIFEROL,CALCIUM CARBONATE [Concomitant]
     Indication: Product used for unknown indication
     Dosage: 1 GRAM, QD
  18. CHOLECALCIFEROL [Concomitant]
     Active Substance: CHOLECALCIFEROL
     Indication: Product used for unknown indication
     Dosage: 50000 INTERNATIONAL UNIT, QMO 1 AMPOULE PER MONTH)
  19. MAGNESIUM CARBONATE [Concomitant]
     Active Substance: MAGNESIUM CARBONATE
     Indication: Product used for unknown indication
     Dosage: UNK
  20. LENOGRASTIM [Concomitant]
     Active Substance: LENOGRASTIM
     Indication: Product used for unknown indication
     Dosage: UNK, 1 TO 2 INJECTIONS PER MONTH DURING THE 4TH WEEK OF THE CYCLE (1 CYCLE LASTS 1 MONTH))
  21. SODIUM BICARBONATE,CALCIUM CARBONATE,SODIUM ALGINATE [Concomitant]
     Indication: Abdominal pain upper
     Dosage: UNK UNK UNK,  (1 SACHET IF GASTRIC PAIN, MAXIMUM 3 PER DAY)
  22. MELPHALAN [Concomitant]
     Active Substance: MELPHALAN
     Indication: Plasma cell myeloma
     Dosage: UNK
  23. COVID-19 VACCINE [Concomitant]
     Dosage: UNK
     Route: 065
  24. AMLODIPINE BESYLATE\PERINDOPRIL ARGININE [Concomitant]
     Active Substance: AMLODIPINE BESYLATE\PERINDOPRIL ARGININE
     Dosage: UNK (10/10: 1 TABLET IN THE MORNING)
     Route: 065

REACTIONS (13)
  - Thrombotic microangiopathy [Recovering/Resolving]
  - Acute kidney injury [Recovering/Resolving]
  - Pulmonary oedema [Unknown]
  - Pneumonia parainfluenzae viral [Unknown]
  - Bronchiolitis [Unknown]
  - Haemolytic uraemic syndrome [Unknown]
  - Oedema peripheral [Unknown]
  - Hyponatraemia [Unknown]
  - Hypertension [Unknown]
  - Diarrhoea [Unknown]
  - Jugular vein occlusion [Unknown]
  - Therapy interrupted [Unknown]
  - Off label use [Unknown]

NARRATIVE: CASE EVENT DATE: 20191201
